FAERS Safety Report 9292838 (Version 1)
Quarter: 2013Q2

REPORT INFORMATION
  Report Type: Spontaneous
  Country: US (occurrence: None)
  Receive Date: 20130513
  Receipt Date: 20130513
  Transmission Date: 20140414
  Serious: Yes (Hospitalization)
  Sender: FDA-Public Use
  Company Number: ACO_35850_2013

PATIENT
  Age: 113 None
  Sex: Female

DRUGS (5)
  1. AMPYRA [Suspect]
     Indication: GAIT DISTURBANCE
     Dates: start: 2010, end: 2012
  2. GLYBURIDE (GILBENCLAMIDE) [Concomitant]
  3. NOVOLOG (INSULIN ASPART) (NO PREF. NAME) [Concomitant]
  4. ALL OTHER THERAPEUTIC PRODUCTS [Concomitant]
  5. ANTIHYPERTENSIVES [Concomitant]

REACTIONS (1)
  - Renal failure acute [None]
